FAERS Safety Report 4870750-1 (Version None)
Quarter: 2005Q4

REPORT INFORMATION
  Report Type: 
  Country: None (occurrence: None)
  Receive Date: 20051229
  Receipt Date: 20051114
  Transmission Date: 20060501
  Serious: Yes (Death)
  Sender: FDA-Public Use
  Company Number: 2005BH002960

PATIENT

DRUGS (5)
  1. ETOPOSIDE [Suspect]
     Indication: CHEMOTHERAPY
     Dosage: 100 MG;PO
     Route: 048
  2. VINORELBINE TARTRATE [Suspect]
     Indication: CHEMOTHERAPY
     Dosage: 30 MG;IV
     Route: 042
  3. CISPLATIN [Suspect]
     Indication: CHEMOTHERAPY
     Dosage: 50 MG;PO
     Route: 048
  4. GEMCITABINE (GEMCITABINE) [Suspect]
     Indication: CHEMOTHERAPY
     Dosage: 1000 MG; IV
     Route: 042
  5. PROTECTIVES AGAINST UV-RADIATION [Concomitant]

REACTIONS (1)
  - DEATH [None]
